FAERS Safety Report 15984558 (Version 1)
Quarter: 2019Q1

REPORT INFORMATION
  Report Type: Report from Study
  Country: GB (occurrence: GB)
  Receive Date: 20190220
  Receipt Date: 20190220
  Transmission Date: 20190418
  Serious: Yes (Other)
  Sender: FDA-Public Use
  Company Number: GB-ROCHE-2254733

PATIENT
  Age: 23 Year
  Sex: Female

DRUGS (1)
  1. RITUXIMAB. [Suspect]
     Active Substance: RITUXIMAB
     Indication: FOCAL SEGMENTAL GLOMERULOSCLEROSIS
     Route: 042

REACTIONS (4)
  - Intentional product use issue [Unknown]
  - Ureteric stenosis [Unknown]
  - Urosepsis [Unknown]
  - Off label use [Unknown]
